FAERS Safety Report 6318485-2 (Version None)
Quarter: 2009Q3

REPORT INFORMATION
  Report Type: 
  Country: None (occurrence: None)
  Receive Date: 20090819
  Receipt Date: 20090804
  Transmission Date: 20100115
  Serious: Yes (Death, Hospitalization)
  Sender: FDA-Public Use
  Company Number: 2009AL001273

PATIENT
  Age: 50 Year
  Sex: Male

DRUGS (24)
  1. DIGOXIN [Suspect]
     Dosage: 0.25MG, DAILY, PO
     Route: 048
  2. QUINIDEX [Concomitant]
  3. VASOTEC [Concomitant]
  4. ISMO [Concomitant]
  5. PREDNISONE TAB [Concomitant]
  6. ASPIRIN [Concomitant]
  7. COUMADIN [Concomitant]
  8. ZOCOR [Concomitant]
  9. CAPTOPRIL [Concomitant]
  10. GLUCOVANCE [Concomitant]
  11. COREG [Concomitant]
  12. SPIRIVA [Concomitant]
  13. SOMA [Concomitant]
  14. ISOSORBIDE DINITRATE [Concomitant]
  15. PRILOSEC [Concomitant]
  16. LASIX [Concomitant]
  17. GLYBURIDE [Concomitant]
  18. SYNTHROID [Concomitant]
  19. XANAX [Concomitant]
  20. SIMVASTATIN [Concomitant]
  21. LANTUS [Concomitant]
  22. JENUVIA [Concomitant]
  23. KAY CIEL DURA-TABS [Concomitant]
  24. ACTOS [Concomitant]

REACTIONS (25)
  - ALOPECIA [None]
  - ASTHENIA [None]
  - ATRIAL FIBRILLATION [None]
  - ATRIAL FLUTTER [None]
  - BLOOD GLUCOSE DECREASED [None]
  - CARDIAC FAILURE CONGESTIVE [None]
  - CARDIOACTIVE DRUG LEVEL INCREASED [None]
  - CEREBROVASCULAR ACCIDENT [None]
  - CHEST PAIN [None]
  - CREPITATIONS [None]
  - DIABETES MELLITUS [None]
  - DYSPNOEA [None]
  - ECONOMIC PROBLEM [None]
  - GAIT DISTURBANCE [None]
  - HEART RATE INCREASED [None]
  - ILL-DEFINED DISORDER [None]
  - LETHARGY [None]
  - MULTIPLE INJURIES [None]
  - MYOCARDIAL INFARCTION [None]
  - OEDEMA PERIPHERAL [None]
  - PERICARDITIS [None]
  - PLEURAL EFFUSION [None]
  - PULMONARY HILUM MASS [None]
  - PULSE ABSENT [None]
  - SPEECH DISORDER [None]
